FAERS Safety Report 10042229 (Version 2)
Quarter: 2014Q2

REPORT INFORMATION
  Report Type: Report from Study
  Country: IL (occurrence: IL)
  Receive Date: 20140327
  Receipt Date: 20140401
  Transmission Date: 20141212
  Serious: Yes (Other)
  Sender: FDA-Public Use
  Company Number: IL-GLAXOSMITHKLINE-B0978933B

PATIENT
  Age: 72 Year
  Sex: Male
  Weight: 95 kg

DRUGS (9)
  1. FLUTICASONE FUROATE + VILANTEROL TRIFENATATE [Suspect]
     Indication: CHRONIC OBSTRUCTIVE PULMONARY DISEASE
  2. CARTIA [Concomitant]
     Indication: MYOCARDIAL ISCHAEMIA
     Dosage: 100MCG PER DAY
     Route: 048
     Dates: start: 20130630
  3. CARDILOC [Concomitant]
     Indication: HYPERTENSION
     Dosage: 2.5MCG PER DAY
     Route: 048
     Dates: start: 20130830
  4. FERROGRAD-FOLIC [Concomitant]
     Indication: ANAEMIA
     Route: 048
     Dates: start: 20130828
  5. FUSID [Concomitant]
     Indication: HYPERTENSION
     Dosage: 40MG TWICE PER DAY
     Route: 048
     Dates: start: 20130707
  6. RAMIPRIL [Concomitant]
     Indication: HYPERTENSION
     Dosage: 2.5MG PER DAY
     Route: 048
     Dates: start: 20130704
  7. ROSUVASTATIN [Concomitant]
     Indication: HYPERCHOLESTEROLAEMIA
     Dosage: 20MG PER DAY
     Route: 048
     Dates: start: 20130530
  8. FAMOTIDINE [Concomitant]
     Indication: GASTROOESOPHAGEAL REFLUX PROPHYLAXIS
     Dosage: 40MG PER DAY
     Route: 048
     Dates: start: 20130630
  9. SPIRONOLACTONE [Concomitant]
     Indication: HYPERTENSION
     Dosage: 25MG PER DAY
     Route: 048
     Dates: start: 20130801

REACTIONS (1)
  - Basal cell carcinoma [Recovered/Resolved]
